FAERS Safety Report 5757628-6 (Version None)
Quarter: 2008Q2

REPORT INFORMATION
  Report Type: 
  Country: None (occurrence: None)
  Receive Date: 20080603
  Receipt Date: 20080522
  Transmission Date: 20081010
  Serious: Yes (Hospitalization, Other)
  Sender: FDA-Public Use
  Company Number: US-PFIZER INC-2008044291

PATIENT
  Sex: Female
  Weight: 85.909 kg

DRUGS (4)
  1. PROCARDIA [Suspect]
     Indication: HYPERTENSION
     Dates: start: 20040101, end: 20080401
  2. PLENDIL [Suspect]
     Indication: HYPERTENSION
  3. COUMADIN [Concomitant]
  4. DRUG, UNSPECIFIED [Concomitant]

REACTIONS (10)
  - ANAEMIA [None]
  - BLOOD GLUCOSE DECREASED [None]
  - CARDIAC FAILURE CONGESTIVE [None]
  - COUGH [None]
  - DEHYDRATION [None]
  - DYSPNOEA [None]
  - PNEUMONIA [None]
  - RENAL DISORDER [None]
  - URINARY TRACT INFECTION [None]
  - WEIGHT DECREASED [None]
